FAERS Safety Report 20097105 (Version 1)
Quarter: 2021Q4

REPORT INFORMATION
  Report Type: Spontaneous
  Country: PE (occurrence: PE)
  Receive Date: 20211122
  Receipt Date: 20211122
  Transmission Date: 20220303
  Serious: Yes (Other)
  Sender: FDA-Public Use
  Company Number: PE-NOVARTISPH-NVSC2021PE266812

PATIENT
  Age: 40 Year
  Sex: Male

DRUGS (1)
  1. TERBINAFINE [Suspect]
     Active Substance: TERBINAFINE
     Indication: Onychomycosis
     Dosage: 250 MG, QD, 35 DAYS CONSECUTIVELY
     Route: 065
     Dates: start: 202005

REACTIONS (9)
  - Drug-induced liver injury [Unknown]
  - Hepatitis acute [Unknown]
  - Vanishing bile duct syndrome [Unknown]
  - Cholestasis [Unknown]
  - Pruritus [Recovered/Resolved]
  - Jaundice [Unknown]
  - Choluria [Unknown]
  - Nausea [Unknown]
  - Hepatomegaly [Unknown]

NARRATIVE: CASE EVENT DATE: 20200601
